FAERS Safety Report 10787507 (Version 2)
Quarter: 2018Q1

REPORT INFORMATION
  Report Type: Report from Study
  Country: TH (occurrence: TH)
  Receive Date: 20150212
  Receipt Date: 20180322
  Transmission Date: 20180508
  Serious: Yes (Hospitalization)
  Sender: FDA-Public Use
  Company Number: TH-ROCHE-1069849

PATIENT
  Age: 64 Year
  Sex: Female
  Weight: 49.4 kg

DRUGS (13)
  1. VITAMIN B COMPLEX [Concomitant]
     Active Substance: CYANOCOBALAMIN\DEXPANTHENOL\NIACINAMIDE\PYRIDOXINE HYDROCHLORIDE\RIBOFLAVIN 5^-PHOSPHATE SODIUM\THIAMINE HYDROCHLORIDE\VITAMIN B COMPLEX
     Route: 065
     Dates: start: 20111229, end: 20120713
  2. CYPROHEPTADINE. [Concomitant]
     Active Substance: CYPROHEPTADINE
     Route: 065
     Dates: start: 20111229, end: 20120713
  3. DEXAMETHASONE. [Concomitant]
     Active Substance: DEXAMETHASONE
     Indication: PREMEDICATION
     Route: 065
     Dates: start: 20111229, end: 20120620
  4. ONSIA [Concomitant]
     Indication: PREMEDICATION
     Dosage: INDICATION: PREMEDICATION
     Route: 065
     Dates: start: 20111229, end: 20120620
  5. PREDNISONE. [Suspect]
     Active Substance: PREDNISONE
     Indication: DIFFUSE LARGE B-CELL LYMPHOMA
     Dosage: ON DAY 1-5 OF 21 DAY CYCLE?MOST RECENT DOSE PRIOR TO SAE: 29/APR/2012, LAST DOSE TAKEN: 100 MG
     Route: 048
     Dates: start: 20111229
  6. SENOKOT [Concomitant]
     Active Substance: SENNOSIDES
     Indication: CONSTIPATION PROPHYLAXIS
     Route: 065
     Dates: start: 20111229, end: 20120624
  7. OBINUTUZUMAB. [Suspect]
     Active Substance: OBINUTUZUMAB
     Indication: DIFFUSE LARGE B-CELL LYMPHOMA
     Dosage: (CYCLE 1 ON DAY 1, 8 AND 15 AND FROM CYCLE 2 ON DAY 1)?LAST VOLUME TAKEN :250ML, LAST DOSE CONCENTRA
     Route: 042
     Dates: start: 20111229
  8. CYCLOPHOSPHAMIDE. [Suspect]
     Active Substance: CYCLOPHOSPHAMIDE
     Indication: DIFFUSE LARGE B-CELL LYMPHOMA
     Dosage: ON DAY 1 OF 21 DAY CYCLE?LAST DOSE:1057.5MG, MOST RECENT DOSE PRIOR TO SAE: 25/APR/2012
     Route: 042
     Dates: start: 20111229
  9. ONSIA [Concomitant]
     Indication: PROPHYLAXIS OF NAUSEA AND VOMITING
     Dosage: INDICATION: VOMITING PROPHYLAXIS
     Route: 065
     Dates: start: 20111229, end: 20120622
  10. DOXORUBICIN [Suspect]
     Active Substance: DOXORUBICIN
     Indication: DIFFUSE LARGE B-CELL LYMPHOMA
     Dosage: ON DAY 1 OF 21 DAY CYCLE?LAST DOSE TAKEN: 70.5 MG, MOST RECENT DOSE PRIOR TO SAE: 25/APR/2012
     Route: 042
     Dates: start: 20111229
  11. PIRITON [Concomitant]
     Active Substance: CHLORPHENIRAMINE MALEATE
     Indication: PREMEDICATION
     Route: 065
     Dates: start: 20111229, end: 20120620
  12. PARACETAMOL [Concomitant]
     Active Substance: ACETAMINOPHEN
     Indication: PREMEDICATION
     Route: 065
     Dates: start: 20111229, end: 20120620
  13. VINCRISTINE [Suspect]
     Active Substance: VINCRISTINE
     Indication: DIFFUSE LARGE B-CELL LYMPHOMA
     Dosage: ON DAY 1 OF 21 DAY CYCLE?MOST RECENT DOSE PRIOR TO SAE: 25/APR/2012, LAST DOSE TAKEN: 1.98 MG
     Route: 040
     Dates: start: 20111229

REACTIONS (1)
  - Pneumonia [Recovered/Resolved]

NARRATIVE: CASE EVENT DATE: 20120514
